FAERS Safety Report 7751455-6 (Version None)
Quarter: 2011Q3

REPORT INFORMATION
  Report Type: 
  Country: None (occurrence: None)
  Receive Date: 20110914
  Receipt Date: 20110906
  Transmission Date: 20111222
  Serious: Yes (Death, Other)
  Sender: FDA-Public Use
  Company Number: PHHY2011DE70178

PATIENT
  Sex: Female

DRUGS (3)
  1. ZOLEDRONIC ACID [Suspect]
     Indication: BREAST CANCER
     Dosage: UNK UKN, UNK
     Route: 042
  2. IBANDRONATE SODIUM [Suspect]
     Indication: BREAST CANCER
     Dosage: UNK UKN, UNK
  3. PAMIDRONATE DISODIUM [Suspect]
     Indication: BREAST CANCER
     Dosage: UNK UKN, UNK
     Route: 042

REACTIONS (4)
  - METASTASES TO BONE [None]
  - OSTEONECROSIS OF JAW [None]
  - NEOPLASM MALIGNANT [None]
  - NEOPLASM PROGRESSION [None]
